FAERS Safety Report 7508739-6 (Version None)
Quarter: 2011Q2

REPORT INFORMATION
  Report Type: 
  Country: None (occurrence: None)
  Receive Date: 20110527
  Receipt Date: 20101111
  Transmission Date: 20111010
  Serious: No
  Sender: FDA-Public Use
  Company Number: A0892159A

PATIENT
  Sex: Female

DRUGS (2)
  1. VENTOLIN [Suspect]
     Route: 065
  2. VENTOLIN HFA [Suspect]
     Dosage: 90MCG UNKNOWN
     Route: 065
     Dates: start: 20101001

REACTIONS (4)
  - FATIGUE [None]
  - PERFORMANCE STATUS DECREASED [None]
  - NAUSEA [None]
  - NERVOUSNESS [None]
